FAERS Safety Report 7821429-5 (Version None)
Quarter: 2011Q4

REPORT INFORMATION
  Report Type: 
  Country: None (occurrence: None)
  Receive Date: 20111018
  Receipt Date: 20111011
  Transmission Date: 20120403
  Serious: Yes (Hospitalization)
  Sender: FDA-Public Use
  Company Number: DE-ACTELION-A-US2010-35455

PATIENT

DRUGS (13)
  1. PERENTEROL [Concomitant]
  2. VENTAVIS [Suspect]
     Dosage: 6XDAY
     Route: 055
  3. VENTAVIS [Suspect]
     Dosage: Q4H
     Route: 055
     Dates: start: 20110401
  4. MARCUMAR [Concomitant]
  5. XIPAMIDE [Concomitant]
  6. ENOXAPARIN SODIUM [Concomitant]
  7. IRON [Concomitant]
  8. VENTAVIS [Suspect]
     Indication: PULMONARY ARTERIAL HYPERTENSION
     Dosage: 2.5 UG, 5 X DAY
     Route: 055
     Dates: start: 20090328, end: 20110327
  9. TORSEMIDE [Concomitant]
  10. REVATIO [Concomitant]
  11. TRACLEER [Concomitant]
     Indication: PULMONARY ARTERIAL HYPERTENSION
     Dosage: UNK
     Route: 048
     Dates: start: 20081219
  12. CIPROFLOXACIN [Concomitant]
  13. CALCITRIOL [Concomitant]

REACTIONS (9)
  - BUNDLE BRANCH BLOCK RIGHT [None]
  - URINARY TRACT INFECTION [None]
  - EPISTAXIS [None]
  - ATRIAL FIBRILLATION [None]
  - DYSPNOEA [None]
  - RENAL FAILURE ACUTE [None]
  - RIGHT VENTRICULAR FAILURE [None]
  - OEDEMA [None]
  - ANAEMIA [None]
